FAERS Safety Report 11549608 (Version 1)
Quarter: 2015Q3

REPORT INFORMATION
  Report Type: Spontaneous
  Country: US (occurrence: US)
  Receive Date: 20150924
  Receipt Date: 20150924
  Transmission Date: 20151125
  Serious: Yes (Other)
  Sender: FDA-Public Use
  Company Number: US-INCYTE CORPORATION-2015IN002392

PATIENT
  Age: 59 Year
  Sex: Male

DRUGS (16)
  1. VITAMIN D                          /00107901/ [Concomitant]
     Active Substance: ERGOCALCIFEROL
  2. ATORVASTATIN [Concomitant]
     Active Substance: ATORVASTATIN
  3. PROAIR HFA [Concomitant]
     Active Substance: ALBUTEROL SULFATE
  4. JAKAFI [Suspect]
     Active Substance: RUXOLITINIB
     Indication: POLYCYTHAEMIA VERA
     Dosage: 10 MG, BID
     Route: 048
     Dates: start: 20150427
  5. PREVACID [Concomitant]
     Active Substance: LANSOPRAZOLE
  6. BABY ASPIRIN [Concomitant]
     Active Substance: ASPIRIN
  7. POTASSIUM [Concomitant]
     Active Substance: POTASSIUM
  8. ALBUTEROL                          /00139501/ [Concomitant]
     Active Substance: ALBUTEROL
  9. SPIRIVA [Concomitant]
     Active Substance: TIOTROPIUM BROMIDE MONOHYDRATE
  10. SYMBICORT [Concomitant]
     Active Substance: BUDESONIDE\FORMOTEROL FUMARATE DIHYDRATE
  11. METOPROLOL [Concomitant]
     Active Substance: METOPROLOL
  12. BROVANA [Concomitant]
     Active Substance: ARFORMOTEROL TARTRATE
  13. LASIX [Concomitant]
     Active Substance: FUROSEMIDE
  14. ALLOPURINOL. [Concomitant]
     Active Substance: ALLOPURINOL
  15. FLONASE [Concomitant]
     Active Substance: FLUTICASONE PROPIONATE
  16. FOLIC ACID. [Concomitant]
     Active Substance: FOLIC ACID

REACTIONS (2)
  - Sinusitis [Unknown]
  - Anaemia [Unknown]

NARRATIVE: CASE EVENT DATE: 201505
